FAERS Safety Report 24300243 (Version 6)
Quarter: 2024Q4

REPORT INFORMATION
  Report Type: Spontaneous
  Country: JP (occurrence: JP)
  Receive Date: 20240909
  Receipt Date: 20241231
  Transmission Date: 20250115
  Serious: Yes (Hospitalization, Other)
  Sender: AMGEN
  Company Number: JP-KYOWAKIRIN-2024KK020395

PATIENT
  Age: 68 Year
  Sex: Male

DRUGS (36)
  1. DARBEPOETIN ALFA [Suspect]
     Active Substance: DARBEPOETIN ALFA
     Indication: Nephrogenic anaemia
     Dosage: 30 MICROGRAM, 2 TIMES/WK
     Route: 010
     Dates: start: 20200629
  2. TERIPARATIDE ACETATE [Concomitant]
     Active Substance: TERIPARATIDE ACETATE
     Indication: Osteoporosis
     Dosage: 56.5 UG, 1X/WEEK
     Route: 058
     Dates: start: 20240625, end: 20240716
  3. GLYCYRRHIZIN [Concomitant]
     Active Substance: GLYCYRRHIZIN
     Indication: Pruritus
     Dosage: 20 MILLILITER, Q3WK
     Route: 042
  4. MAXACALCITOL [Concomitant]
     Active Substance: MAXACALCITOL
     Indication: Hyperparathyroidism secondary
     Dosage: 5 UG, 3X/WEEK
     Route: 042
     Dates: start: 20240730
  5. KORSUVA [Concomitant]
     Active Substance: DIFELIKEFALIN ACETATE
     Indication: Pruritus
     Dosage: 35 UG, 3X/WEEK
     Route: 042
     Dates: start: 20240720
  6. ELOBIXIBAT [Concomitant]
     Active Substance: ELOBIXIBAT
     Indication: Product used for unknown indication
     Dosage: 15 MG, QD, 3 TABLETS/ONCE DAILY (BEFORE BREAKFAST)
     Route: 048
     Dates: start: 20240706
  7. SILODOSIN [Concomitant]
     Active Substance: SILODOSIN
     Indication: Product used for unknown indication
     Dosage: 4 MG, 1 TABLET
     Route: 048
     Dates: start: 20240706, end: 20240901
  8. VONOPRAZAN FUMARATE [Concomitant]
     Active Substance: VONOPRAZAN FUMARATE
     Indication: Product used for unknown indication
     Dosage: 10 MG, 1 TABLET
     Route: 048
     Dates: start: 20240706
  9. ALFACALCIDOL [Concomitant]
     Active Substance: ALFACALCIDOL
     Indication: Product used for unknown indication
     Dosage: 0.5 UG, QD, 1 TABLET/ONCE DAILY (AFTER BREAKFAST)
     Route: 048
     Dates: start: 20240706, end: 20240730
  10. Pursennide [Concomitant]
     Indication: Product used for unknown indication
     Dosage: 24 MG, QD, 2 TABLETS/ONCE DAILY (AFTER LUNCH)
     Route: 048
     Dates: start: 20240706, end: 20240821
  11. RUPAFIN [Concomitant]
     Active Substance: RUPATADINE FUMARATE
     Indication: Product used for unknown indication
     Dosage: 10 MG, 1 TABLET
     Route: 048
     Dates: start: 20240706, end: 20240830
  12. NALFURAFINE HYDROCHLORIDE [Concomitant]
     Active Substance: NALFURAFINE HYDROCHLORIDE
     Indication: Product used for unknown indication
     Dosage: 5 UG, 2 TABLETS
     Route: 048
     Dates: start: 20240706, end: 20240718
  13. SHAKUYAKUKANZOTO [Concomitant]
     Active Substance: HERBALS
     Indication: Product used for unknown indication
     Dosage: 2.5 G, 1 PACKET/ONCE DAILY (BEFORE SLEEP)
     Route: 065
     Dates: start: 20240706, end: 20240831
  14. RIFAXIMIN [Concomitant]
     Active Substance: RIFAXIMIN
     Indication: Product used for unknown indication
     Dosage: 1200 MG, 6 TABLETS
     Route: 048
     Dates: start: 20240706
  15. NICORANDIL [Concomitant]
     Active Substance: NICORANDIL
     Indication: Product used for unknown indication
     Dosage: 15 MG, 3 TABLETS
     Route: 048
     Dates: start: 20240706
  16. AMINO ACIDS, SOURCE UNSPECIFIED [Concomitant]
     Active Substance: AMINO ACIDS, SOURCE UNSPECIFIED
     Indication: Product used for unknown indication
     Dosage: 12.45 G, 3 PACKETS (GRAIN)
     Route: 065
     Dates: start: 20240706
  17. LAGNOS NF [Concomitant]
     Indication: Product used for unknown indication
     Dosage: 72 G, 6 PACKETS
     Route: 048
     Dates: start: 20240706
  18. ADETPHOS [Concomitant]
     Active Substance: ADENOSINE TRIPHOSPHATE
     Indication: Product used for unknown indication
     Dosage: 3.0 G (GRAIN )
     Route: 065
     Dates: start: 20240706, end: 20240831
  19. BETAHISTINE MESILATE [Concomitant]
     Active Substance: BETAHISTINE MESILATE
     Indication: Product used for unknown indication
     Dosage: 6 MG, TID, 3 TABLETS/IN 3 DIVIDED DOSES (AFTER EACH MEAL)
     Route: 048
     Dates: start: 20240706, end: 20240720
  20. TRESIBA [Concomitant]
     Active Substance: INSULIN DEGLUDEC
     Indication: Product used for unknown indication
     Dosage: UNK
     Route: 065
     Dates: start: 20240706
  21. LYUMJEV [Concomitant]
     Active Substance: INSULIN LISPRO-AABC
     Indication: Product used for unknown indication
     Dosage: UNK
     Route: 065
     Dates: start: 20240706
  22. LOXOPROFEN SODIUM [Concomitant]
     Active Substance: LOXOPROFEN SODIUM
     Indication: Product used for unknown indication
     Dosage: UNK, QD, 5 SHEETS ONCE DAILY FOR BILATERAL SHOULDERS AND LOWER BACK (TAPE (INCLUDING POULTICE))
     Route: 062
     Dates: start: 20240706
  23. NORSPAN [Concomitant]
     Active Substance: BUPRENORPHINE
     Indication: Product used for unknown indication
     Dosage: UNK, 1 SHEET ONCE DAILY (EVENING) PRECORDIA (ON SATURDAYS) TAPE (INCLUDING POULTICE)
     Route: 062
     Dates: start: 20240706
  24. FOLIC ACID [Concomitant]
     Active Substance: FOLIC ACID
     Indication: Product used for unknown indication
     Dosage: 5 MG, 1T, ONLY ON SATURDAYS
     Route: 048
     Dates: start: 20240713
  25. BETAHISTINE MESILATE [Concomitant]
     Active Substance: BETAHISTINE MESILATE
     Indication: Product used for unknown indication
     Dosage: 6 MG, TID, 3 TABLETS/IN 3 DIVIDED DOSES (AFTER EACH MEAL)
     Route: 048
     Dates: start: 20240721, end: 20240831
  26. TRAMADOL HYDROCHLORIDE [Concomitant]
     Active Substance: TRAMADOL HYDROCHLORIDE
     Indication: Product used for unknown indication
     Dosage: 25 MG, 1 TABLET
     Route: 048
     Dates: start: 20240725
  27. TRAMADOL HYDROCHLORIDE [Concomitant]
     Active Substance: TRAMADOL HYDROCHLORIDE
     Dosage: 25 MG, QD, 1 TABLET BEFORE SLEEP
     Route: 048
     Dates: start: 20240912
  28. SENNOSIDES A AND B [Concomitant]
     Active Substance: SENNOSIDES A AND B
     Indication: Product used for unknown indication
     Dosage: 24 MG, QD, 2 TABLETS/ONCE DAILY (AFTER LUNCH)
     Route: 048
     Dates: start: 20240822, end: 20240901
  29. SENNOSIDES A AND B [Concomitant]
     Active Substance: SENNOSIDES A AND B
     Dosage: 24 MG, QD
     Route: 048
     Dates: start: 20240902
  30. NICORANDIL [Concomitant]
     Active Substance: NICORANDIL
     Indication: Product used for unknown indication
     Dosage: 15 MG, 3 TABLETS
     Route: 048
     Dates: start: 20240824
  31. OLOPATADINE HYDROCHLORIDE [Concomitant]
     Active Substance: OLOPATADINE HYDROCHLORIDE
     Indication: Product used for unknown indication
     Dosage: 5 MG, BID, 2 TABLETS/IN 2 DIVIDED DOSES (AFTER BREAKFAST AND DINNER)
     Route: 048
     Dates: start: 20240830
  32. DAYVIGO [Concomitant]
     Active Substance: LEMBOREXANT
     Indication: Product used for unknown indication
     Dosage: 2.5 MG, 1 TABLET BEFORE SLEEP
     Route: 048
     Dates: start: 20240830
  33. CELESTAMINE [Concomitant]
     Active Substance: BETAMETHASONE\DEXCHLORPHENIRAMINE MALEATE
     Indication: Product used for unknown indication
     Dosage: UNK, 2 TABLETS BEFORE SLEEP
     Route: 048
     Dates: start: 20240831, end: 20240903
  34. MIROGABALIN BESYLATE [Concomitant]
     Active Substance: MIROGABALIN BESYLATE
     Indication: Product used for unknown indication
     Dosage: 5 MG, 2 TABLETS
     Route: 048
     Dates: start: 20240706
  35. TRAMADOL [Concomitant]
     Active Substance: TRAMADOL
     Indication: Product used for unknown indication
     Dosage: 25 MG, 1 TABLET
     Route: 048
     Dates: start: 20240706
  36. OLOPATADINE HYDROCHLORIDE [Concomitant]
     Active Substance: OLOPATADINE HYDROCHLORIDE
     Indication: Product used for unknown indication
     Dosage: 5 MG, BID, 2 TABLETS/IN 2 DIVIDED DOSES (AFTER BREAKFAST AND DINNER)
     Route: 048
     Dates: start: 20240830

REACTIONS (7)
  - Aplasia pure red cell [Unknown]
  - Spinal compression fracture [Recovering/Resolving]
  - Hyperammonaemia [Not Recovered/Not Resolved]
  - Osteoporosis [Not Recovered/Not Resolved]
  - Fall [Recovering/Resolving]
  - Off label use [Unknown]
  - Muscular weakness [Not Recovered/Not Resolved]

NARRATIVE: CASE EVENT DATE: 20200101
